FAERS Safety Report 7223542 (Version 8)
Quarter: 2012Q4

REPORT INFORMATION
  Report Type: 
  Country: RU (occurrence: RU)
  Receive Date: 20091218
  Receipt Date: 20121026
  Transmission Date: 20130627
  Serious: Yes (Death)
  Sender: FDA-Public Use
  Company Number: RU-BAYER-200942028GPV

PATIENT
  Age: 36 Year
  Sex: Female

DRUGS (1)
  1. ULTRAVIST [Suspect]
     Indication: RENAL NEOPLASM
     Route: 042
     Dates: start: 20091207, end: 20091207

REACTIONS (7)
  - Anaphylactic shock [Fatal]
  - Asthenia [Fatal]
  - Cough [Fatal]
  - Cerebral haemorrhage [Fatal]
  - Myocardial haemorrhage [Fatal]
  - Brain oedema [Fatal]
  - Pulmonary oedema [Fatal]
